FAERS Safety Report 10715069 (Version 1)
Quarter: 2015Q1

REPORT INFORMATION
  Report Type: Spontaneous
  Country: US (occurrence: US)
  Receive Date: 20150115
  Receipt Date: 20150115
  Transmission Date: 20150721
  Serious: Yes (Other)
  Sender: FDA-Public Use
  Company Number: US-GLAXOSMITHKLINE-US2015002550

PATIENT
  Age: 62 Year
  Sex: Male

DRUGS (3)
  1. ADVAIR DISKUS [Suspect]
     Active Substance: FLUTICASONE PROPIONATE\SALMETEROL XINAFOATE
     Indication: SPUTUM INCREASED
     Dosage: UNK PUFF(S), UNK
     Route: 055
  2. AVODART [Suspect]
     Active Substance: DUTASTERIDE
     Indication: DYSPNOEA
     Dosage: 0.5 MG, QD
     Route: 048
     Dates: start: 2012
  3. TAMSULOSIN [Concomitant]
     Active Substance: TAMSULOSIN

REACTIONS (2)
  - Heart valve operation [Unknown]
  - Overdose [Unknown]

NARRATIVE: CASE EVENT DATE: 201410
